FAERS Safety Report 10207970 (Version 1)
Quarter: 2014Q2

REPORT INFORMATION
  Report Type: Spontaneous
  Country: US (occurrence: US)
  Receive Date: 20140530
  Receipt Date: 20140530
  Transmission Date: 20141212
  Serious: No
  Sender: FDA-Public Use
  Company Number: US-GLAXOSMITHKLINE-A1066512A

PATIENT
  Age: 56 Year
  Sex: Female

DRUGS (13)
  1. VENTOLIN [Suspect]
     Indication: ASTHMA
     Dosage: 2PUFF AS REQUIRED
     Route: 055
     Dates: start: 1982
  2. QVAR [Concomitant]
  3. VICTOZA [Concomitant]
  4. GABAPENTIN [Concomitant]
  5. BENAZEPRIL [Concomitant]
  6. GLIMEPIRIDE [Concomitant]
  7. METOPROLOL [Concomitant]
  8. SIMVASTATIN [Concomitant]
  9. CELEXA [Concomitant]
  10. MELOXICAM [Concomitant]
  11. LASIX [Concomitant]
  12. POTASSIUM [Concomitant]
  13. ASPIRIN [Concomitant]

REACTIONS (2)
  - Malaise [Recovering/Resolving]
  - Nasopharyngitis [Recovering/Resolving]
